FAERS Safety Report 9508588 (Version 1)
Quarter: 2013Q3

REPORT INFORMATION
  Report Type: Report from Study
  Country: US (occurrence: US)
  Receive Date: 20130909
  Receipt Date: 20130909
  Transmission Date: 20140515
  Serious: Yes (Other)
  Sender: FDA-Public Use
  Company Number: US-ACTELION-A-NJ2013-87901

PATIENT
  Age: 75 Year
  Sex: Female

DRUGS (11)
  1. TRACLEER [Suspect]
     Indication: PULMONARY ARTERIAL HYPERTENSION
     Dosage: 62.5 MG, BID
     Route: 048
     Dates: start: 2008
  2. ADVAIR [Concomitant]
     Dosage: 250/50 MG, BID
  3. ADCIRCA [Concomitant]
     Dosage: 20 MG, QD
  4. FENTANYL [Concomitant]
     Dosage: 50 MG, QD
  5. HYDROCODONE [Concomitant]
     Dosage: 5/325 MG PRN
  6. DIOVAN [Concomitant]
     Dosage: 160/12.5 MG, QD
  7. DILTIAZEM [Concomitant]
     Dosage: 180 MG, QD
  8. LEVOTHYROXINE [Concomitant]
     Dosage: 0.025 MG, QD
  9. VITAMIN D [Concomitant]
     Dosage: 2000 U, QD
  10. ASPIRIN [Concomitant]
     Dosage: 81 MG, QD
  11. ZOFRAN [Concomitant]
     Dosage: 8 MG, PRN

REACTIONS (5)
  - Red blood cell count decreased [Not Recovered/Not Resolved]
  - Thyroid neoplasm [Unknown]
  - Transfusion [Recovering/Resolving]
  - Oedema peripheral [Not Recovered/Not Resolved]
  - Myelodysplastic syndrome [Not Recovered/Not Resolved]
